FAERS Safety Report 9205734 (Version 1)
Quarter: 2013Q2

REPORT INFORMATION
  Report Type: Spontaneous
  Country: US (occurrence: US)
  Receive Date: 20130403
  Receipt Date: 20130403
  Transmission Date: 20140414
  Serious: Yes (Other)
  Sender: FDA-Public Use
  Company Number: US-SHIRE-ALL1-2013-02016

PATIENT
  Age: 11 Year
  Sex: Male

DRUGS (1)
  1. VYVANSE [Suspect]
     Indication: PRODUCT USED FOR UNKNOWN INDICATION
     Dosage: 30 MG, UNKNOWN
     Route: 048

REACTIONS (6)
  - Tetany [Recovering/Resolving]
  - Hallucination [Recovering/Resolving]
  - Abasia [Recovering/Resolving]
  - Hypoaesthesia [Recovering/Resolving]
  - Visual impairment [Recovering/Resolving]
  - Dizziness [Recovering/Resolving]
